FAERS Safety Report 6752321-5 (Version None)
Quarter: 2010Q2

REPORT INFORMATION
  Report Type: 
  Country: None (occurrence: None)
  Receive Date: 20100602
  Receipt Date: 20100527
  Transmission Date: 20101027
  Serious: Yes (Hospitalization)
  Sender: FDA-Public Use
  Company Number: GXKR2010GB05964

PATIENT
  Age: 75 Year
  Sex: Male

DRUGS (10)
  1. WARFARIN SODIUM [Suspect]
     Route: 048
  2. AMLODIPINE [Concomitant]
  3. ATORVASTATIN [Concomitant]
  4. BISOPROLOL FUMARATE [Concomitant]
  5. DIGOXIN [Concomitant]
  6. EZETIMIBE [Concomitant]
  7. FUROSEMIDE [Concomitant]
  8. ISOSORBIDE MONONITRATE [Concomitant]
  9. LANTUS [Concomitant]
  10. NOVORAPID [Concomitant]

REACTIONS (2)
  - FALL [None]
  - INTERNATIONAL NORMALISED RATIO INCREASED [None]
